FAERS Safety Report 8298723-X (Version None)
Quarter: 2012Q2

REPORT INFORMATION
  Report Type: 
  Country: None (occurrence: None)
  Receive Date: 20120419
  Receipt Date: 20120410
  Transmission Date: 20120825
  Serious: Yes (Other)
  Sender: FDA-Public Use
  Company Number: DE-JNJFOC-20120404530

PATIENT
  Sex: Female

DRUGS (16)
  1. HALDOL [Suspect]
     Route: 048
  2. METFORMIN HYDROCHLORIDE [Suspect]
     Indication: PRODUCT USED FOR UNKNOWN INDICATION
     Route: 048
  3. LEVOTHYROXINE SODIUM [Suspect]
     Route: 048
  4. VALPROATE SODIUM [Suspect]
     Route: 048
     Dates: start: 20120410, end: 20120410
  5. LORAZEPAM [Suspect]
     Route: 048
     Dates: start: 20120410, end: 20120410
  6. PAROXETINE [Suspect]
     Route: 048
  7. AKINETON [Suspect]
     Route: 048
  8. PAROXETINE [Suspect]
     Indication: PRODUCT USED FOR UNKNOWN INDICATION
     Route: 048
     Dates: start: 20120410, end: 20120410
  9. AKINETON [Suspect]
     Indication: PRODUCT USED FOR UNKNOWN INDICATION
     Route: 048
     Dates: start: 20120410, end: 20120410
  10. HALDOL [Suspect]
     Indication: PRODUCT USED FOR UNKNOWN INDICATION
     Route: 048
     Dates: start: 20120410, end: 20120410
  11. LORAZEPAM [Suspect]
     Indication: PRODUCT USED FOR UNKNOWN INDICATION
     Route: 048
  12. PANTOPRAZOLE [Suspect]
     Indication: PRODUCT USED FOR UNKNOWN INDICATION
     Route: 048
  13. PANTOPRAZOLE [Suspect]
     Route: 048
     Dates: start: 20120410, end: 20120410
  14. VALPROATE SODIUM [Suspect]
     Indication: PRODUCT USED FOR UNKNOWN INDICATION
     Route: 048
  15. METFORMIN HYDROCHLORIDE [Suspect]
     Route: 048
     Dates: start: 20120410, end: 20120410
  16. LEVOTHYROXINE SODIUM [Suspect]
     Indication: PRODUCT USED FOR UNKNOWN INDICATION
     Route: 048
     Dates: start: 20120410, end: 20120410

REACTIONS (3)
  - NAUSEA [None]
  - MULTIPLE DRUG OVERDOSE INTENTIONAL [None]
  - SUICIDE ATTEMPT [None]
